FAERS Safety Report 5504379-9 (Version None)
Quarter: 2007Q4

REPORT INFORMATION
  Report Type: 
  Country: None (occurrence: None)
  Receive Date: 20071030
  Receipt Date: 20070911
  Transmission Date: 20080405
  Serious: No
  Sender: FDA-Public Use
  Company Number: 267381

PATIENT
  Age: 72 Year
  Sex: Female

DRUGS (3)
  1. LEVEMIR [Suspect]
     Indication: INSULIN-REQUIRING TYPE II DIABETES MELLITUS
     Dosage: 60 IU, QD (EVENING), SUBCUTANEOUS; 20 IU, QD (EVENING), SUBCANEOUS
     Route: 058
  2. NOVOLOG [Suspect]
     Indication: INSULIN-REQUIRING TYPE II DIABETES MELLITUS
     Dosage: 13 IU, BID, SUBCUTANEOUS
     Route: 058
  3. PLAVIX [Concomitant]

REACTIONS (1)
  - INJECTION SITE BRUISING [None]
